FAERS Safety Report 6523618-9 (Version None)
Quarter: 2009Q4

REPORT INFORMATION
  Report Type: 
  Country: None (occurrence: None)
  Receive Date: 20091231
  Receipt Date: 20091228
  Transmission Date: 20100525
  Serious: Yes (Death, Other)
  Sender: FDA-Public Use
  Company Number: PHHY2009FR43573

PATIENT
  Age: 37 Year
  Sex: Male

DRUGS (16)
  1. LEPONEX [Suspect]
     Dosage: 300 MG DAILY
     Dates: start: 20080101
  2. LAROXYL [Suspect]
     Dosage: 50 MG DAILY
     Dates: start: 20090101
  3. NOZINAN [Suspect]
     Dosage: 100 DROPS DAILY
     Dates: start: 20080101
  4. RIVOTRIL [Concomitant]
     Dosage: 10 DRP, PRN
     Dates: start: 20080101, end: 20090429
  5. ESPERAL [Concomitant]
     Dosage: 1 DF, QD
  6. DEPAKINE CHRONO [Concomitant]
     Dosage: 4 DFDAILY
  7. URBANYL [Concomitant]
     Dosage: 3 DF DAILY
     Dates: start: 20080101, end: 20090429
  8. VALIUM [Concomitant]
     Dosage: 10 MG, PRN
     Route: 054
     Dates: start: 20080101, end: 20090429
  9. ESOMEPRAZOLE SODIUM (NEXIUM) [Concomitant]
     Dosage: 1 DF DAILY
     Dates: start: 20080101, end: 20090429
  10. GAVISCON [Concomitant]
     Dosage: 3 DF DAILY
  11. SCOPODERM [Concomitant]
     Dosage: 1 DF, QOD
  12. LYSOPAINE [Concomitant]
     Dosage: 4 DF DAILY
     Dates: start: 20090428
  13. FORLAX [Concomitant]
     Dosage: 6 DF DALIY
     Dates: start: 20090428
  14. LANSOYL [Concomitant]
     Dosage: 2 DF, UNK
     Dates: start: 20090429
  15. FORTRANS [Concomitant]
     Dosage: 2 DF, UNK
     Dates: start: 20090429
  16. SUBUTEX [Concomitant]
     Dosage: 8 MG, UNK
     Dates: start: 20090410

REACTIONS (7)
  - ANTIPSYCHOTIC DRUG LEVEL INCREASED [None]
  - ASPHYXIA [None]
  - CARDIO-RESPIRATORY DISTRESS [None]
  - CONSTIPATION [None]
  - NAUSEA [None]
  - OVERDOSE [None]
  - VOMITING [None]
